FAERS Safety Report 11313374 (Version 2)
Quarter: 2015Q3

REPORT INFORMATION
  Report Type: Report from Study
  Country: DE (occurrence: DE)
  Receive Date: 20150727
  Receipt Date: 20150817
  Transmission Date: 20151125
  Serious: Yes (Hospitalization)
  Sender: FDA-Public Use
  Company Number: DE-BAXALTA-2015BLT000620

PATIENT
  Age: 18 Year
  Sex: Male
  Weight: 76.6 kg

DRUGS (6)
  1. ARCOXIA [Concomitant]
     Active Substance: ETORICOXIB
     Indication: ARTHRITIS
     Dosage: 90 MG, AS NEEDED
     Route: 048
     Dates: start: 20141228
  2. NOVOSEVEN [Concomitant]
     Active Substance: COAGULATION FACTOR VIIA RECOMBINANT HUMAN
     Indication: HAEMORRHAGE
     Dosage: UNK UNK, AS NEEDED
     Route: 042
     Dates: start: 20141223
  3. ROCEPHIN [Concomitant]
     Active Substance: CEFTRIAXONE SODIUM
     Indication: INFLAMMATION
     Dosage: UNK UNK, AS NEEDED
     Route: 042
     Dates: start: 20141224
  4. FEIBA NF [Suspect]
     Active Substance: ANTI-INHIBITOR COAGULANT COMPLEX
     Indication: PROPHYLAXIS
     Route: 042
  5. IBUPROFEN AL [Concomitant]
     Active Substance: IBUPROFEN
     Indication: ARTHRITIS
     Dosage: 600 MG, AS NEEDED
     Route: 048
     Dates: start: 20141223
  6. CEFUROXIM [Concomitant]
     Active Substance: CEFUROXIME
     Indication: INFLAMMATION
     Dosage: UNK MG, AS NEEDED
     Route: 048
     Dates: start: 20141224

REACTIONS (1)
  - Device related infection [Not Recovered/Not Resolved]

NARRATIVE: CASE EVENT DATE: 20150711
